FAERS Safety Report 6036470-5 (Version None)
Quarter: 2009Q1

REPORT INFORMATION
  Report Type: 
  Country: None (occurrence: None)
  Receive Date: 20090112
  Receipt Date: 20081229
  Transmission Date: 20090719
  Serious: Yes (Other)
  Sender: FDA-Public Use
  Company Number: 2009AL000069

PATIENT
  Age: 82 Year
  Sex: Male

DRUGS (4)
  1. TRAMADOL HYDROCHLORIDE [Suspect]
     Indication: ARTHRALGIA
     Dosage: 100 MG; PO
     Route: 048
     Dates: start: 20081105, end: 20081204
  2. ACETYLSALICYLIC ACID SRT [Concomitant]
  3. VIAZEM XL [Concomitant]
  4. BENDROFLUMETHIAZIDE [Concomitant]

REACTIONS (6)
  - AGITATION [None]
  - DRUG WITHDRAWAL SYNDROME [None]
  - INAPPROPRIATE SCHEDULE OF DRUG ADMINISTRATION [None]
  - PAIN [None]
  - SUICIDAL IDEATION [None]
  - TEARFULNESS [None]
